FAERS Safety Report 6661556-1 (Version None)
Quarter: 2010Q1

REPORT INFORMATION
  Report Type: 
  Country: None (occurrence: None)
  Receive Date: 20100331
  Receipt Date: 20100330
  Transmission Date: 20100710
  Serious: Yes (Death)
  Sender: FDA-Public Use
  Company Number: AU-B.I. PHARMACEUTICALS,INC./RIDGEFIELD-2010-AU-00254AU

PATIENT
  Age: 46 Year
  Sex: Male

DRUGS (1)
  1. MICARDIS [Suspect]
     Dates: start: 20070101

REACTIONS (1)
  - MYOCARDIAL INFARCTION [None]
